FAERS Safety Report 8310366-8 (Version None)
Quarter: 2012Q2

REPORT INFORMATION
  Report Type: 
  Country: None (occurrence: None)
  Receive Date: 20120425
  Receipt Date: 20120418
  Transmission Date: 20120825
  Serious: Yes (Hospitalization)
  Sender: FDA-Public Use
  Company Number: GR-ASTRAZENECA-2012SE25842

PATIENT
  Age: 70 Year
  Sex: Male

DRUGS (4)
  1. SALOSPIR [Concomitant]
     Indication: ACUTE CORONARY SYNDROME
     Route: 048
  2. BETA-BLOCKER [Concomitant]
     Route: 048
  3. ANGIOTENSIN CONVERTING ENZYME INHIBITORS [Concomitant]
     Route: 048
  4. BRILIQUE [Suspect]
     Indication: ACUTE CORONARY SYNDROME
     Route: 048
     Dates: start: 20120401

REACTIONS (3)
  - DYSPNOEA [None]
  - ASTHENIA [None]
  - ABDOMINAL PAIN [None]
